FAERS Safety Report 14657999 (Version 3)
Quarter: 2018Q2

REPORT INFORMATION
  Report Type: Report from Study
  Country: None (occurrence: BE)
  Receive Date: 20180320
  Receipt Date: 20180626
  Transmission Date: 20180711
  Serious: Yes (Hospitalization)
  Sender: FDA-Public Use
  Company Number: BE-ABBVIE-18K-013-2290756-00

PATIENT
  Sex: Male
  Weight: 80 kg

DRUGS (8)
  1. DUODOPA [Suspect]
     Active Substance: CARBIDOPA\LEVODOPA
     Indication: PARKINSON^S DISEASE
     Dosage: MD=8ML?CD=3.7ML/HR DURING 16HRS ?ED=3ML
     Route: 050
     Dates: start: 20140113, end: 20140117
  2. DUODOPA [Suspect]
     Active Substance: CARBIDOPA\LEVODOPA
     Dosage: MD=8ML?CD=2.7 (AM) - 2.3 (PM) ML/HR DURING 16HRS ?ED=2ML
     Route: 050
     Dates: start: 20170109, end: 20180410
  3. DUODOPA [Suspect]
     Active Substance: CARBIDOPA\LEVODOPA
     Dosage: DOSES CONTINUOUSLY MONITORED AND ADAPTED
     Route: 050
     Dates: start: 20140117, end: 20170109
  4. DUODOPA [Suspect]
     Active Substance: CARBIDOPA\LEVODOPA
     Dosage: MD=3ML?CD= 2ML/HR DURING 16HRS?ED=1.5ML?DOSAGE DECREASED
     Route: 050
     Dates: start: 20180621
  5. DETRUSITOL [Concomitant]
     Active Substance: TOLTERODINE TARTRATE
     Indication: PRODUCT USED FOR UNKNOWN INDICATION
  6. DUODOPA [Suspect]
     Active Substance: CARBIDOPA\LEVODOPA
     Dosage: MD=8ML?CD=2.3ML/HR DURING 16HRS?ED=2ML
     Route: 050
     Dates: start: 20180410, end: 20180621
  7. TRIBVIT [Concomitant]
     Indication: PRODUCT USED FOR UNKNOWN INDICATION
  8. ALPRAZOLAM. [Concomitant]
     Active Substance: ALPRAZOLAM
     Indication: PRODUCT USED FOR UNKNOWN INDICATION

REACTIONS (4)
  - Muscle rigidity [Recovered/Resolved]
  - Dehydration [Unknown]
  - Pneumonia [Unknown]
  - Dyskinesia [Recovered/Resolved]
